FAERS Safety Report 10495326 (Version 1)
Quarter: 2014Q4

REPORT INFORMATION
  Report Type: Spontaneous
  Country: IT (occurrence: DE)
  Receive Date: 20141003
  Receipt Date: 20141003
  Transmission Date: 20150528
  Serious: Yes (Other)
  Sender: FDA-Public Use
  Company Number: DE-FRI-1000071232

PATIENT
  Sex: Male

DRUGS (11)
  1. PREDNISOLONE. [Suspect]
     Active Substance: PREDNISOLONE
  2. CLOPIDOGREL [Suspect]
     Active Substance: CLOPIDOGREL BISULFATE
  3. SPIRIVA [Suspect]
     Active Substance: TIOTROPIUM BROMIDE MONOHYDRATE
  4. ATROVENT [Suspect]
     Active Substance: IPRATROPIUM BROMIDE
  5. SIMVASTATIN. [Suspect]
     Active Substance: SIMVASTATIN
  6. OMEPRAZOLE. [Suspect]
     Active Substance: OMEPRAZOLE
  7. DEKRISTOLONE [Suspect]
     Active Substance: CHOLECALCIFEROL
     Dosage: 20000 IU
  8. NEBIVOLOL [Suspect]
     Active Substance: NEBIVOLOL
  9. ASPIRIN. [Suspect]
     Active Substance: ASPIRIN
  10. PRAMIPEXOLE [Suspect]
     Active Substance: PRAMIPEXOLE
  11. AMLODIPINE [Suspect]
     Active Substance: AMLODIPINE BESYLATE

REACTIONS (1)
  - Pulmonary hypertension [Unknown]
